FAERS Safety Report 9735472 (Version 2)
Quarter: 2015Q3

REPORT INFORMATION
  Report Type: Spontaneous
  Country: US (occurrence: US)
  Receive Date: 20131206
  Receipt Date: 20150804
  Transmission Date: 20151125
  Serious: No
  Sender: FDA-Public Use
  Company Number: US-GILEAD-2009-0023292

PATIENT
  Age: 53 Year
  Sex: Female

DRUGS (9)
  1. COLCHICINE. [Concomitant]
     Active Substance: COLCHICINE
  2. HYDRALAZINE [Concomitant]
     Active Substance: HYDRALAZINE HYDROCHLORIDE
  3. GLYBURIDE. [Concomitant]
     Active Substance: GLYBURIDE
  4. LETAIRIS [Suspect]
     Active Substance: AMBRISENTAN
     Indication: PULMONARY ARTERIAL HYPERTENSION
  5. REVATIO [Concomitant]
     Active Substance: SILDENAFIL CITRATE
  6. POTASSIUM [Concomitant]
     Active Substance: POTASSIUM
  7. LORTAB [Concomitant]
     Active Substance: ACETAMINOPHEN\HYDROCODONE BITARTRATE
  8. LASIX [Concomitant]
     Active Substance: FUROSEMIDE
  9. BYETTA [Concomitant]
     Active Substance: EXENATIDE

REACTIONS (1)
  - Nasal congestion [Not Recovered/Not Resolved]

NARRATIVE: CASE EVENT DATE: 20090722
